FAERS Safety Report 9016683 (Version 1)
Quarter: 2013Q1

REPORT INFORMATION
  Report Type: Report from Study
  Country: CR (occurrence: CR)
  Receive Date: 20130116
  Receipt Date: 20130116
  Transmission Date: 20140127
  Serious: Yes (Hospitalization)
  Sender: FDA-Public Use
  Company Number: CR-ROCHE-1179615

PATIENT
  Age: 80 Year
  Sex: Female

DRUGS (2)
  1. BONVIVA [Suspect]
     Indication: OSTEOPOROSIS
     Route: 048
     Dates: start: 20060124, end: 201212
  2. POTASSIUM GLUCONATE [Concomitant]

REACTIONS (2)
  - Thrombosis [Recovering/Resolving]
  - Muscular weakness [Recovering/Resolving]
